FAERS Safety Report 21023615 (Version 1)
Quarter: 2022Q2

REPORT INFORMATION
  Report Type: Spontaneous
  Country: US (occurrence: None)
  Receive Date: 20220629
  Receipt Date: 20220629
  Transmission Date: 20220721
  Serious: Yes (Death)
  Sender: FDA-Public Use
  Company Number: None

PATIENT
  Age: 64 Year
  Sex: Female
  Weight: 60.33 kg

DRUGS (17)
  1. ERLOTINIB [Suspect]
     Active Substance: ERLOTINIB
     Indication: Non-small cell lung cancer
     Dosage: FREQUENCY : DAILY;?
     Route: 048
  2. ALIGN [Concomitant]
     Active Substance: BIFIDOBACTERIUM LONGUM SUBSP. INFANTIS
  3. ATIVAN [Concomitant]
     Active Substance: LORAZEPAM
  4. BIOTIN [Concomitant]
     Active Substance: BIOTIN
  5. CALCIUM [Concomitant]
     Active Substance: CALCIUM
  6. OYSTER SHELL [Concomitant]
     Active Substance: OSTREA EDULIS SHELL
  7. CARBOPLATIN [Concomitant]
     Active Substance: CARBOPLATIN
  8. CLARITIN [Concomitant]
     Active Substance: LORATADINE
  9. DECADRON [Concomitant]
     Active Substance: DEXAMETHASONE
  10. DOXYCYCLINE [Concomitant]
     Active Substance: DOXYCYCLINE
  11. ETOPOSIDE [Concomitant]
     Active Substance: ETOPOSIDE
  12. NEURONTIN [Concomitant]
     Active Substance: GABAPENTIN
  13. VITAMIN D3 [Concomitant]
     Active Substance: CHOLECALCIFEROL
  14. METAMUCIL [Concomitant]
     Active Substance: PLANTAGO SEED
  15. OXYCODONE [Concomitant]
     Active Substance: OXYCODONE
  16. TUMS [Concomitant]
     Active Substance: CALCIUM CARBONATE
  17. XGEVA [Concomitant]
     Active Substance: DENOSUMAB

REACTIONS (1)
  - Death [None]

NARRATIVE: CASE EVENT DATE: 20220625
